FAERS Safety Report 11689339 (Version 2)
Quarter: 2015Q4

REPORT INFORMATION
  Report Type: Spontaneous
  Country: US (occurrence: US)
  Receive Date: 20151102
  Receipt Date: 20151109
  Transmission Date: 20160304
  Serious: No
  Sender: FDA-Public Use
  Company Number: US-009507513-1510USA011435

PATIENT
  Age: 58 Year
  Sex: Male

DRUGS (11)
  1. LORTAB [Concomitant]
     Active Substance: ACETAMINOPHEN\HYDROCODONE BITARTRATE
     Dosage: UNK
  2. OMEPRAZOLE. [Concomitant]
     Active Substance: OMEPRAZOLE
     Dosage: UNK
  3. ALBUTEROL. [Concomitant]
     Active Substance: ALBUTEROL
     Dosage: UNK
  4. SYLATRON [Suspect]
     Active Substance: PEGINTERFERON ALFA-2B
     Indication: MALIGNANT MELANOMA
     Dosage: 700 MICROGRAM, QW
     Route: 058
     Dates: start: 20150505, end: 201510
  5. GLYBURIDE. [Concomitant]
     Active Substance: GLYBURIDE
     Dosage: UNK
  6. LOTENSIN [Concomitant]
     Active Substance: BENAZEPRIL HYDROCHLORIDE
  7. PAXIL [Concomitant]
     Active Substance: PAROXETINE HYDROCHLORIDE
  8. AMLODIPINE [Concomitant]
     Active Substance: AMLODIPINE BESYLATE
     Dosage: UNK
  9. QVAR [Concomitant]
     Active Substance: BECLOMETHASONE DIPROPIONATE
  10. TRIAMTERENE. [Concomitant]
     Active Substance: TRIAMTERENE
     Dosage: UNK
  11. RHINOCORT AQUA [Concomitant]
     Active Substance: BUDESONIDE

REACTIONS (2)
  - Necrosis [Unknown]
  - Skin lesion [Unknown]

NARRATIVE: CASE EVENT DATE: 20151001
